FAERS Safety Report 4543937-5 (Version None)
Quarter: 2005Q1

REPORT INFORMATION
  Report Type: 
  Country: None (occurrence: None)
  Receive Date: 20050104
  Receipt Date: 20041228
  Transmission Date: 20050727
  Serious: Yes (Other)
  Sender: FDA-Public Use
  Company Number: US-JNJFOC-20041207507

PATIENT
  Sex: Male

DRUGS (4)
  1. LEVAQUIN [Suspect]
     Route: 049
  2. FLOMAX [Concomitant]
  3. GLUCOPHAGE [Concomitant]
  4. LISINOPRIL [Concomitant]

REACTIONS (1)
  - AGEUSIA [None]
